FAERS Safety Report 11706448 (Version 1)
Quarter: 2015Q4

REPORT INFORMATION
  Report Type: Spontaneous
  Country: GB (occurrence: GB)
  Receive Date: 20151106
  Receipt Date: 20151106
  Transmission Date: 20160304
  Serious: Yes (Other)
  Sender: FDA-Public Use
  Company Number: PHHY2015GB141194

PATIENT
  Age: 26 Year
  Sex: Female
  Weight: 88.9 kg

DRUGS (4)
  1. CITALOPRAM [Suspect]
     Active Substance: CITALOPRAM HYDROBROMIDE
     Dosage: 10 MG, QD
     Route: 048
  2. CITALOPRAM [Suspect]
     Active Substance: CITALOPRAM HYDROBROMIDE
     Dosage: 40 MG, QD
     Route: 048
  3. MIRENA [Concomitant]
     Active Substance: LEVONORGESTREL
     Indication: ENDOMETRIOSIS
     Route: 065
  4. CITALOPRAM [Suspect]
     Active Substance: CITALOPRAM HYDROBROMIDE
     Indication: DEPRESSION
     Dosage: 20 MG, QD
     Route: 048

REACTIONS (6)
  - Depression [Recovered/Resolved]
  - Condition aggravated [Unknown]
  - Abnormal weight gain [Recovered/Resolved with Sequelae]
  - Galactorrhoea [Recovered/Resolved]
  - Anhedonia [Recovered/Resolved]
  - Loss of libido [Recovering/Resolving]

NARRATIVE: CASE EVENT DATE: 201409
